FAERS Safety Report 7792161-1 (Version None)
Quarter: 2011Q4

REPORT INFORMATION
  Report Type: 
  Country: None (occurrence: None)
  Receive Date: 20111003
  Receipt Date: 20111003
  Transmission Date: 20120403
  Serious: Yes (Life-Threatening, Hospitalization, Other)
  Sender: FDA-Public Use
  Company Number: None

PATIENT
  Age: 51 Year
  Sex: Female
  Weight: 90.718 kg

DRUGS (1)
  1. AVELOX [Suspect]
     Indication: MASTOIDITIS
     Dosage: 400 MG
     Route: 042
     Dates: start: 20101230, end: 20110104

REACTIONS (8)
  - HEPATITIS [None]
  - MOVEMENT DISORDER [None]
  - DYSGRAPHIA [None]
  - IMPAIRED WORK ABILITY [None]
  - DEPRESSION [None]
  - SLEEP DISORDER [None]
  - PAIN [None]
  - TENDONITIS [None]
